FAERS Safety Report 5248578-2 (Version None)
Quarter: 2007Q1

REPORT INFORMATION
  Report Type: 
  Country: None (occurrence: None)
  Receive Date: 20070227
  Receipt Date: 20070215
  Transmission Date: 20070707
  Serious: Yes (Other)
  Sender: FDA-Public Use
  Company Number: US-PFIZER INC-2007013866

PATIENT
  Sex: Female
  Weight: 87.1 kg

DRUGS (9)
  1. LYRICA [Suspect]
     Indication: BACK PAIN
  2. LYRICA [Suspect]
     Indication: PAIN IN EXTREMITY
  3. NAPROXEN [Concomitant]
  4. IRON [Concomitant]
  5. GLIPIZIDE [Concomitant]
  6. ALL OTHER THERAPEUTIC PRODUCTS [Concomitant]
  7. PREDNISONE [Concomitant]
  8. FOLIC ACID [Concomitant]
  9. ACTONEL [Concomitant]

REACTIONS (3)
  - SKIN DISORDER [None]
  - SKIN ULCER [None]
  - WEIGHT INCREASED [None]
